FAERS Safety Report 19813695 (Version 4)
Quarter: 2022Q4

REPORT INFORMATION
  Report Type: Spontaneous
  Country: BE (occurrence: BE)
  Receive Date: 20210910
  Receipt Date: 20221216
  Transmission Date: 20230112
  Serious: Yes (Life-Threatening, Hospitalization, Other)
  Sender: FDA-Public Use
  Company Number: BE-MLMSERVICE-20210830-3078039-1

PATIENT
  Age: 14 Hour
  Weight: 1.6 kg

DRUGS (4)
  1. ERYTHROMYCIN [Suspect]
     Active Substance: ERYTHROMYCIN
     Indication: Ureaplasma infection
     Dosage: 5 MG/KG, 2X/DAY
     Route: 042
     Dates: start: 20200901, end: 20201001
  2. NITRIC OXIDE [Concomitant]
     Active Substance: NITRIC OXIDE
     Indication: Pulmonary hypertension
     Dosage: UNK
  3. AMOXICILLIN [Concomitant]
     Active Substance: AMOXICILLIN
     Indication: Amniotic cavity infection
     Dosage: UNK
  4. AMIKACIN [Concomitant]
     Active Substance: AMIKACIN
     Indication: Amniotic cavity infection
     Dosage: UNK

REACTIONS (6)
  - Torsade de pointes [Recovered/Resolved]
  - Ventricular tachycardia [Recovered/Resolved]
  - Neonatal tachyarrhythmia [Recovered/Resolved]
  - Long QT syndrome [Recovered/Resolved]
  - Cardiac arrest neonatal [Recovered/Resolved]
  - Ventricular extrasystoles [Recovered/Resolved]
